FAERS Safety Report 17711504 (Version 2)
Quarter: 2020Q2

REPORT INFORMATION
  Report Type: Spontaneous
  Country: None (occurrence: CZ)
  Receive Date: 20200427
  Receipt Date: 20200512
  Transmission Date: 20200714
  Serious: Yes (Hospitalization, Other)
  Sender: FDA-Public Use
  Company Number: CZ-ORION CORPORATION ORION PHARMA-20_00008966

PATIENT
  Age: 73 Year
  Sex: Female

DRUGS (1)
  1. METHOTREXATE. [Suspect]
     Active Substance: METHOTREXATE
     Indication: RHEUMATOID ARTHRITIS
     Route: 065
     Dates: end: 201905

REACTIONS (9)
  - Acute kidney injury [Recovered/Resolved]
  - Fluid intake reduced [Recovered/Resolved]
  - Decreased appetite [Recovered/Resolved]
  - Epstein Barr virus positive mucocutaneous ulcer [Recovered/Resolved]
  - Immunosuppression [Recovered/Resolved]
  - Streptococcus test positive [Recovered/Resolved]
  - Pancytopenia [Recovered/Resolved]
  - Dehydration [Recovered/Resolved]
  - Candida test positive [Recovered/Resolved]
